FAERS Safety Report 10441114 (Version 1)
Quarter: 2014Q3

REPORT INFORMATION
  Report Type: Spontaneous
  Country: US (occurrence: US)
  Receive Date: 20140909
  Receipt Date: 20140909
  Transmission Date: 20150326
  Serious: Yes (Other)
  Sender: FDA-Public Use
  Company Number: US-BANPHARM-20143013

PATIENT
  Age: 56 Year
  Sex: Male
  Weight: 103.87 kg

DRUGS (5)
  1. BAYER LOW DOSE [Concomitant]
     Active Substance: ASPIRIN
     Indication: CARDIOVASCULAR EVENT PROPHYLAXIS
  2. PRESCRIPTION MEDICATION [Concomitant]
  3. ALEVE [Suspect]
     Active Substance: NAPROXEN SODIUM
     Indication: PAIN
     Dosage: 1 DF, BID,
     Route: 048
     Dates: start: 2011
  4. DIABETES MEDICATION [Concomitant]
     Active Substance: UNSPECIFIED INGREDIENT
  5. BAYER AM EXTRA STENGTH [Suspect]
     Active Substance: ASPIRIN\CAFFEINE
     Dosage: 2 DF, QID,
     Route: 048
     Dates: start: 2007, end: 2011

REACTIONS (3)
  - Incorrect drug administration duration [Unknown]
  - Cerebrovascular accident [Recovered/Resolved]
  - Myocardial infarction [Recovered/Resolved]

NARRATIVE: CASE EVENT DATE: 2011
